FAERS Safety Report 6417812-5 (Version None)
Quarter: 2009Q4

REPORT INFORMATION
  Report Type: 
  Country: None (occurrence: None)
  Receive Date: 20091028
  Receipt Date: 20091020
  Transmission Date: 20100525
  Serious: Yes (Other)
  Sender: FDA-Public Use
  Company Number: BR-AVENTIS-200921761GDDC

PATIENT
  Sex: Male
  Weight: 110 kg

DRUGS (6)
  1. LANTUS [Suspect]
     Route: 058
  2. TENADREN [Concomitant]
     Indication: HYPERTENSION
     Dosage: DOSE QUANTITY: 1
     Route: 048
  3. NAPRIX                             /00885601/ [Concomitant]
     Indication: HYPERTENSION
     Dosage: DOSE QUANTITY: 1
     Route: 048
  4. OMNIC [Concomitant]
     Indication: HYPERTENSION
     Dosage: DOSE QUANTITY: 1
     Route: 048
  5. CYMBALTA [Concomitant]
     Dosage: DOSE QUANTITY: 1
     Route: 048
  6. MEPRAZOL [Concomitant]
     Dosage: DOSE QUANTITY: 2
     Route: 048

REACTIONS (3)
  - DIZZINESS [None]
  - HYPERGLYCAEMIA [None]
  - THROMBOSIS [None]
